FAERS Safety Report 18120397 (Version 2)
Quarter: 2020Q3

REPORT INFORMATION
  Report Type: Report from Study
  Country: CN (occurrence: CN)
  Receive Date: 20200806
  Receipt Date: 20200807
  Transmission Date: 20201103
  Serious: Yes (Hospitalization)
  Sender: FDA-Public Use
  Company Number: CN-GILEAD-2020-0487731

PATIENT
  Sex: Male
  Weight: 65 kg

DRUGS (5)
  1. ELVITEGRAVIR/COBICISTAT/EMTRICITABINE/TENOFOVIR ALAFENAMIDE [Suspect]
     Active Substance: COBICISTAT\ELVITEGRAVIR\EMTRICITABINE\TENOFOVIR
     Indication: HIV INFECTION
     Dosage: UNK
     Route: 048
  2. LANQIN ORAL SOLUTION [Concomitant]
     Indication: NASAL CAVITY PACKING
     Route: 048
     Dates: start: 20200701
  3. COMPOUND SODIUM CHLORIDE [Concomitant]
     Indication: FLUID REPLACEMENT
     Route: 042
     Dates: start: 20200629
  4. PIRACETAM [Concomitant]
     Active Substance: PIRACETAM
     Indication: AUTONOMIC NERVOUS SYSTEM IMBALANCE
     Route: 042
     Dates: start: 20200703
  5. BUFFERIN COLD [Concomitant]
     Indication: NASAL CAVITY PACKING
     Route: 048
     Dates: start: 20200701

REACTIONS (1)
  - Kaposi^s sarcoma [Not Recovered/Not Resolved]

NARRATIVE: CASE EVENT DATE: 20200728
